FAERS Safety Report 24365841 (Version 1)
Quarter: 2024Q3

REPORT INFORMATION
  Report Type: Spontaneous
  Country: US (occurrence: None)
  Receive Date: 20240925
  Receipt Date: 20240925
  Transmission Date: 20241017
  Serious: Yes (unspecified)
  Sender: Public
  Company Number: None

PATIENT
  Age: 32 Year
  Sex: Female

DRUGS (2)
  1. CAPECITABINE [Suspect]
     Active Substance: CAPECITABINE
     Indication: Breast cancer female
     Dosage: 2000MG BID FOR 14 DAYS ON, 7 DAYS OFF?
  2. CAPECITABINE [Suspect]
     Active Substance: CAPECITABINE
     Dosage: 150MG BID FOR 14 DAYS ON, 7 DAYS OFF?

REACTIONS (4)
  - Nausea [None]
  - Vomiting [None]
  - Chest discomfort [None]
  - Therapy cessation [None]
